FAERS Safety Report 9587392 (Version 1)
Quarter: 2013Q4

REPORT INFORMATION
  Report Type: Spontaneous
  Country: FR (occurrence: FR)
  Receive Date: 20131003
  Receipt Date: 20131003
  Transmission Date: 20140711
  Serious: Yes (Hospitalization, Other)
  Sender: FDA-Public Use
  Company Number: FR-BRISTOL-MYERS SQUIBB COMPANY-19434331

PATIENT
  Age: 49 Year
  Sex: Female

DRUGS (11)
  1. ABILIFY TABS 15 MG [Suspect]
     Route: 048
  2. TERCIAN [Suspect]
     Dosage: TABS
  3. EFFEXOR [Concomitant]
     Dosage: TABS
  4. SERESTA [Concomitant]
     Dosage: TABS
  5. INEXIUM [Concomitant]
  6. LASILIX [Concomitant]
  7. SPECIAFOLDINE [Concomitant]
  8. AMLOR [Concomitant]
  9. DIFFU-K [Concomitant]
  10. TOPALGIC [Concomitant]
  11. DAFALGAN [Concomitant]

REACTIONS (4)
  - General physical condition abnormal [Unknown]
  - Vomiting [Unknown]
  - Diarrhoea [Unknown]
  - Weight increased [Not Recovered/Not Resolved]
